FAERS Safety Report 8891127 (Version 2)
Quarter: 2012Q4

REPORT INFORMATION
  Report Type: 
  Country: US (occurrence: US)
  Receive Date: 20121107
  Receipt Date: 20121113
  Transmission Date: 20130627
  Serious: No
  Sender: FDA-Public Use
  Company Number: US-ASTRAZENECA-2012SE81750

PATIENT
  Age: 66 Year
  Sex: Female
  Weight: 88 kg

DRUGS (3)
  1. BRILINTA [Suspect]
     Indication: STENT PLACEMENT
     Route: 048
     Dates: start: 2012
  2. DEXILANT [Concomitant]
  3. PRILOSEC [Concomitant]
     Route: 048
     Dates: start: 20120924

REACTIONS (7)
  - Diabetes mellitus [Unknown]
  - Arteriosclerosis coronary artery [Unknown]
  - Faeces discoloured [Unknown]
  - Sleep apnoea syndrome [Unknown]
  - Dyspnoea [Unknown]
  - Ecchymosis [Unknown]
  - Dizziness [Unknown]
